FAERS Safety Report 5004758-2 (Version None)
Quarter: 2006Q2

REPORT INFORMATION
  Report Type: 
  Country: None (occurrence: None)
  Receive Date: 20060517
  Receipt Date: 20060515
  Transmission Date: 20061013
  Serious: Yes (Hospitalization)
  Sender: FDA-Public Use
  Company Number: FR-MERCK-0605FRA00049

PATIENT
  Age: 15 Year
  Sex: Male

DRUGS (1)
  1. SINGULAIR [Suspect]
     Indication: ASTHMA
     Route: 048
     Dates: end: 20060301

REACTIONS (2)
  - VENTRICULAR EXTRASYSTOLES [None]
  - WISDOM TEETH REMOVAL [None]
